FAERS Safety Report 23242674 (Version 1)
Quarter: 2023Q4

REPORT INFORMATION
  Report Type: Spontaneous
  Country: NZ (occurrence: NZ)
  Receive Date: 20231129
  Receipt Date: 20231129
  Transmission Date: 20240110
  Serious: Yes (Hospitalization, Other)
  Sender: FDA-Public Use
  Company Number: NZ-GE HEALTHCARE-2023CSU010716

PATIENT
  Age: 81 Year
  Sex: Male
  Weight: 74.5 kg

DRUGS (4)
  1. OMNIPAQUE [Suspect]
     Active Substance: IOHEXOL
     Indication: Computerised tomogram
     Dosage: 95 ML, SINGLE
     Route: 042
     Dates: start: 20231123, end: 20231123
  2. OMNIPAQUE [Suspect]
     Active Substance: IOHEXOL
     Indication: Disease progression
  3. PREDNISONE [Concomitant]
     Active Substance: PREDNISONE
     Dosage: UNK
  4. CETIRIZINE [Concomitant]
     Active Substance: CETIRIZINE HYDROCHLORIDE
     Dosage: UNK

REACTIONS (6)
  - Sneezing [Unknown]
  - Chest pain [Unknown]
  - Chest discomfort [Unknown]
  - Lip swelling [Unknown]
  - Erythema [Unknown]
  - Cough [Unknown]

NARRATIVE: CASE EVENT DATE: 20231123
